FAERS Safety Report 25505512 (Version 3)
Quarter: 2025Q3

REPORT INFORMATION
  Report Type: Spontaneous
  Country: US (occurrence: US)
  Receive Date: 20250702
  Receipt Date: 20250819
  Transmission Date: 20251020
  Serious: Yes (Other)
  Sender: ALNYLAM PHARMACEUTICALS
  Company Number: US-ALNYLAM PHARMACEUTICALS, INC.-ALN-2025-002966

PATIENT

DRUGS (2)
  1. GIVLAARI [Suspect]
     Active Substance: GIVOSIRAN SODIUM
     Indication: Porphyria acute
     Route: 065
     Dates: start: 202411, end: 202411
  2. GIVLAARI [Suspect]
     Active Substance: GIVOSIRAN SODIUM
     Route: 065
     Dates: start: 202412, end: 202412

REACTIONS (10)
  - Renal impairment [Recovered/Resolved]
  - Porphyria acute [Recovered/Resolved]
  - Liver function test increased [Recovered/Resolved]
  - Blood homocysteine increased [Recovered/Resolved]
  - Decreased appetite [Recovered/Resolved]
  - Weight increased [Unknown]
  - Hot flush [Unknown]
  - Brain fog [Unknown]
  - Arthralgia [Unknown]
  - Lipase increased [Recovered/Resolved]
